FAERS Safety Report 9482667 (Version 3)
Quarter: 2013Q3

REPORT INFORMATION
  Report Type: Report from Study
  Country: ES (occurrence: ES)
  Receive Date: 20130828
  Receipt Date: 20130910
  Transmission Date: 20140515
  Serious: Yes (Other)
  Sender: FDA-Public Use
  Company Number: ES-MERCK-1306ESP010546

PATIENT
  Age: 52 Year
  Sex: Female

DRUGS (6)
  1. VICTRELIS [Suspect]
     Indication: HEPATITIS C
     Dosage: 2400, MG
     Route: 048
     Dates: start: 20120524, end: 20130329
  2. PEGINTRON [Suspect]
     Indication: HEPATITIS C
     Dosage: 80 MICROGRAM, QW
     Route: 058
     Dates: start: 20120420, end: 20130329
  3. RIBAVIRIN [Suspect]
     Indication: HEPATITIS C
     Dosage: 1000, MG
     Route: 048
     Dates: start: 20120420, end: 20120723
  4. RIBAVIRIN [Suspect]
     Dosage: 600 MG
     Route: 048
     Dates: start: 20120723, end: 20130329
  5. ARANESP (DARBEPOETIN ALFA) [Concomitant]
     Dosage: 60 MICROGRAM, QW
     Dates: start: 20120910, end: 20121107
  6. ARANESP (DARBEPOETIN ALFA) [Concomitant]
     Dosage: 100 MICROGRAM, QW
     Dates: start: 20121108, end: 20130214

REACTIONS (6)
  - Loss of consciousness [Recovered/Resolved]
  - Dizziness [Recovered/Resolved]
  - Major depression [Recovering/Resolving]
  - Anaemia [Not Recovered/Not Resolved]
  - Thrombocytopenia [Not Recovered/Not Resolved]
  - Myalgia [Recovering/Resolving]
